FAERS Safety Report 18987757 (Version 4)
Quarter: 2021Q2

REPORT INFORMATION
  Report Type: Report from Study
  Country: US (occurrence: US)
  Receive Date: 20210309
  Receipt Date: 20210512
  Transmission Date: 20210717
  Serious: No
  Sender: FDA-Public Use
  Company Number: NVSC2021US054306

PATIENT
  Sex: Female

DRUGS (1)
  1. PIQRAY [Suspect]
     Active Substance: ALPELISIB
     Indication: PRODUCT USED FOR UNKNOWN INDICATION
     Dosage: UNK
     Route: 048
     Dates: start: 20210226

REACTIONS (5)
  - Rash pruritic [Unknown]
  - Rash papular [Unknown]
  - Diarrhoea [Unknown]
  - Blood glucose increased [Unknown]
  - Pruritus [Unknown]
